FAERS Safety Report 4561456-7 (Version None)
Quarter: 2005Q1

REPORT INFORMATION
  Report Type: 
  Country: None (occurrence: None)
  Receive Date: 20050121
  Receipt Date: 20050105
  Transmission Date: 20050727
  Serious: Yes (Other)
  Sender: FDA-Public Use
  Company Number: USA041285781

PATIENT
  Age: 77 Year
  Sex: Female

DRUGS (5)
  1. FORTEO [Suspect]
     Indication: OSTEOPOROSIS
     Dates: start: 20040326
  2. CALCIUM GLUCONATE [Concomitant]
  3. SYNTHROID [Concomitant]
  4. VITAMIN D [Concomitant]
  5. MAGNESIUM [Concomitant]

REACTIONS (4)
  - CATARACT [None]
  - CONDITION AGGRAVATED [None]
  - HYPERCALCAEMIA [None]
  - PHARMACEUTICAL PRODUCT COMPLAINT [None]
